FAERS Safety Report 25863288 (Version 1)
Quarter: 2025Q3

REPORT INFORMATION
  Report Type: Spontaneous
  Country: EU (occurrence: EU)
  Receive Date: 20250930
  Receipt Date: 20250930
  Transmission Date: 20251020
  Serious: Yes (Other)
  Sender: ROCHE
  Company Number: None

PATIENT
  Age: 41 Year
  Sex: Female

DRUGS (4)
  1. BEVACIZUMAB [Suspect]
     Active Substance: BEVACIZUMAB
     Indication: Colorectal cancer
     Route: 065
     Dates: start: 202002
  2. FOLIC ACID [Suspect]
     Active Substance: FOLIC ACID
     Indication: Colorectal cancer
     Route: 065
     Dates: start: 202002
  3. IRINOTECAN [Suspect]
     Active Substance: IRINOTECAN
     Indication: Colorectal cancer
     Route: 065
     Dates: start: 202002
  4. FLUOROURACIL [Suspect]
     Active Substance: FLUOROURACIL
     Indication: Colorectal cancer
     Route: 065
     Dates: start: 202002

REACTIONS (2)
  - Anxiety [Recovered/Resolved]
  - Affect lability [Recovered/Resolved]
